FAERS Safety Report 20553262 (Version 1)
Quarter: 2022Q1

REPORT INFORMATION
  Report Type: Spontaneous
  Country: CO (occurrence: CO)
  Receive Date: 20220304
  Receipt Date: 20220304
  Transmission Date: 20220423
  Serious: Yes (Other)
  Sender: FDA-Public Use
  Company Number: CO-MSNLABS-2022MSNLIT00183

PATIENT

DRUGS (1)
  1. MOXIFLOXACIN [Suspect]
     Active Substance: MOXIFLOXACIN
     Indication: Bronchitis
     Route: 048

REACTIONS (2)
  - Glaucoma [Recovered/Resolved with Sequelae]
  - Iris transillumination defect [Recovered/Resolved with Sequelae]
